FAERS Safety Report 24771049 (Version 1)
Quarter: 2024Q4

REPORT INFORMATION
  Report Type: Report from Study
  Country: US (occurrence: US)
  Receive Date: 20241224
  Receipt Date: 20241224
  Transmission Date: 20250115
  Serious: Yes (Other)
  Sender: MERCK
  Company Number: US-009507513-2412USA007591

PATIENT
  Sex: Female

DRUGS (3)
  1. WINREVAIR [Suspect]
     Active Substance: SOTATERCEPT-CSRK
     Indication: Pulmonary arterial hypertension
     Dosage: 0.8MG/KG/EVERY 3 WEEKS
     Route: 058
     Dates: start: 2024
  2. ELIQUIS [Concomitant]
     Active Substance: APIXABAN
  3. PLAVIX [Concomitant]
     Active Substance: CLOPIDOGREL BISULFATE

REACTIONS (15)
  - Scleroderma [Recovering/Resolving]
  - Autoimmune disorder [Recovering/Resolving]
  - Rectal haemorrhage [Recovering/Resolving]
  - Platelet count decreased [Recovering/Resolving]
  - Fatigue [Recovering/Resolving]
  - Asthenia [Recovering/Resolving]
  - Insomnia [Recovering/Resolving]
  - Dyspnoea [Recovering/Resolving]
  - Pyrexia [Recovering/Resolving]
  - Feeling abnormal [Recovering/Resolving]
  - Nausea [Recovering/Resolving]
  - Illness [Recovering/Resolving]
  - Gait disturbance [Recovering/Resolving]
  - Haemorrhoidal haemorrhage [Recovering/Resolving]
  - Haemoglobin decreased [Recovering/Resolving]

NARRATIVE: CASE EVENT DATE: 20240101
